FAERS Safety Report 7680511-6 (Version None)
Quarter: 2011Q3

REPORT INFORMATION
  Report Type: 
  Country: None (occurrence: None)
  Receive Date: 20110812
  Receipt Date: 20110808
  Transmission Date: 20111222
  Serious: Yes (Hospitalization)
  Sender: FDA-Public Use
  Company Number: US-SANOFI-AVENTIS-2011SA051221

PATIENT
  Age: 50 Year
  Sex: Male

DRUGS (9)
  1. CLINDAMYCIN [Concomitant]
  2. PREDNISONE [Concomitant]
  3. ALBUTEROL SULFATE AUTOHALER [Concomitant]
  4. GUAIFENESIN [Concomitant]
  5. MOXIFLOXACIN [Concomitant]
  6. ADVAIR DISKUS 100/50 [Concomitant]
  7. ATROVENT [Concomitant]
  8. ENOXAPARIN SODIUM [Suspect]
     Indication: THROMBOSIS PROPHYLAXIS
     Route: 058
     Dates: start: 20100301, end: 20100312
  9. PLACEBO [Suspect]
     Indication: THROMBOSIS PROPHYLAXIS
     Route: 065
     Dates: start: 20100301, end: 20100313

REACTIONS (5)
  - ORGANISING PNEUMONIA [None]
  - CHEST PAIN [None]
  - URETHRITIS [None]
  - CYSTITIS [None]
  - RENAL FAILURE ACUTE [None]
